FAERS Safety Report 7065130-7 (Version None)
Quarter: 2010Q4

REPORT INFORMATION
  Report Type: 
  Country: None (occurrence: None)
  Receive Date: 20101027
  Receipt Date: 20101018
  Transmission Date: 20110411
  Serious: Yes (Other)
  Sender: FDA-Public Use
  Company Number: SE-ACTELION-A-CH2008-22465

PATIENT
  Sex: Male
  Weight: 88 kg

DRUGS (1)
  1. MIGLUSTAT CAPSULE 100 MG EU [Suspect]
     Indication: GAUCHER'S DISEASE
     Dosage: 100 MG, TID
     Route: 048
     Dates: start: 20041015, end: 20090925

REACTIONS (3)
  - CHITOTRIOSIDASE INCREASED [None]
  - DRUG INEFFECTIVE [None]
  - OSTEONECROSIS [None]
